FAERS Safety Report 4459265-2 (Version None)
Quarter: 2004Q3

REPORT INFORMATION
  Report Type: 
  Country: None (occurrence: None)
  Receive Date: 20040922
  Receipt Date: 20040922
  Transmission Date: 20050211
  Serious: Yes (Life-Threatening, Hospitalization)
  Sender: FDA-Public Use
  Company Number: None

PATIENT
  Age: 60 Year
  Sex: Male
  Weight: 95 kg

DRUGS (1)
  1. HURRICAINE SPRAY 1%  BEULICH [Suspect]
     Indication: ECHOCARDIOGRAM
     Dosage: 2 SPRAYS ONCE OROPHARIGEAL
     Route: 049
     Dates: start: 20040920, end: 20040920

REACTIONS (2)
  - CYANOSIS [None]
  - LABORATORY TEST ABNORMAL [None]
